FAERS Safety Report 7767598-7 (Version None)
Quarter: 2011Q3

REPORT INFORMATION
  Report Type: 
  Country: None (occurrence: None)
  Receive Date: 20110922
  Receipt Date: 20110913
  Transmission Date: 20111222
  Serious: Yes (Hospitalization, Other)
  Sender: FDA-Public Use
  Company Number: US-BAYER-2011-003434

PATIENT
  Age: 25 Year
  Sex: Female
  Weight: 59 kg

DRUGS (19)
  1. YASMIN [Suspect]
  2. YASMIN [Suspect]
     Indication: DEPRESSION
  3. BIOTIN [Concomitant]
     Dosage: UNK UNK, HS
     Dates: start: 20090101, end: 20100101
  4. YAZ [Suspect]
  5. NEXIUM [Concomitant]
     Dosage: 40 MG, QD
     Route: 048
  6. TORADOL [Concomitant]
     Dosage: 60 MG, UNK
     Route: 030
     Dates: start: 20091225
  7. YAZ [Suspect]
     Indication: PREMENSTRUAL SYNDROME
  8. ASCORBIC ACID [Concomitant]
     Dosage: UNK
     Dates: start: 20090101, end: 20100101
  9. IBUPROFEN [Concomitant]
     Dosage: UNK
     Dates: start: 20090101, end: 20100101
  10. YAZ [Suspect]
     Indication: DEPRESSION
  11. WELCHOL [Concomitant]
     Indication: BLOOD PRESSURE ABNORMAL
     Dosage: 625 MG, TID
     Route: 048
     Dates: start: 20090101
  12. AMOXICILLIN [Concomitant]
  13. YASMIN [Suspect]
     Indication: CONTRACEPTION
     Dosage: UNK
     Dates: start: 20030401, end: 20070801
  14. PROPOXYPHENE HYDROCHLORIDE [Concomitant]
     Indication: MIGRAINE
     Dosage: UNK
     Dates: start: 20060101
  15. AZITHROMYCIN [Concomitant]
  16. YAZ [Suspect]
     Indication: CONTRACEPTION
     Dosage: UNK
     Dates: start: 20070801, end: 20100201
  17. YASMIN [Suspect]
     Indication: PREMENSTRUAL SYNDROME
  18. FROVA [Concomitant]
     Indication: MIGRAINE
     Dosage: UNK
     Dates: start: 20080101
  19. CEPHALEXIN [Concomitant]

REACTIONS (6)
  - GALLBLADDER DISORDER [None]
  - ABDOMINAL PAIN [None]
  - EMOTIONAL DISTRESS [None]
  - CHOLECYSTITIS CHRONIC [None]
  - BILIARY DYSKINESIA [None]
  - MENTAL DISORDER [None]
